FAERS Safety Report 25390150 (Version 1)
Quarter: 2025Q2

REPORT INFORMATION
  Report Type: Spontaneous
  Country: JP (occurrence: JP)
  Receive Date: 20250603
  Receipt Date: 20250603
  Transmission Date: 20250716
  Serious: Yes (Hospitalization, Other)
  Sender: COSETTE PHARMACEUTICALS INC
  Company Number: JP-MLMSERVICE-20250512-PI505376-00239-1

PATIENT
  Age: 70 Year
  Sex: Female

DRUGS (5)
  1. AMBIEN [Suspect]
     Active Substance: ZOLPIDEM TARTRATE
     Indication: Insomnia
     Route: 065
  2. NITRAZEPAM [Suspect]
     Active Substance: NITRAZEPAM
     Indication: Insomnia
     Route: 065
  3. BROTIZOLAM [Suspect]
     Active Substance: BROTIZOLAM
     Indication: Insomnia
     Route: 065
  4. ETIZOLAM [Suspect]
     Active Substance: ETIZOLAM
     Indication: Insomnia
     Route: 065
  5. PAROXETINE [Concomitant]
     Active Substance: PAROXETINE
     Indication: Persistent depressive disorder
     Route: 065

REACTIONS (10)
  - Sleep apnoea syndrome [Recovering/Resolving]
  - Symptom masked [Recovering/Resolving]
  - Withdrawal syndrome [Recovering/Resolving]
  - Delirium [Recovering/Resolving]
  - Anxiety [Recovering/Resolving]
  - Disorganised speech [Recovering/Resolving]
  - Apathy [Recovering/Resolving]
  - Depressed mood [Recovering/Resolving]
  - Insomnia [Recovering/Resolving]
  - Intentional product misuse [Unknown]
